FAERS Safety Report 5155813-8 (Version None)
Quarter: 2006Q4

REPORT INFORMATION
  Report Type: 
  Country: None (occurrence: None)
  Receive Date: 20061113
  Receipt Date: 20061102
  Transmission Date: 20070319
  Serious: Yes (Death)
  Sender: FDA-Public Use
  Company Number: S06-USA-03262-01

PATIENT
  Age: 48 Year
  Sex: Male
  Weight: 106.8675 kg

DRUGS (3)
  1. CAMPRAL [Suspect]
     Indication: ALCOHOLISM
     Dosage: 666 MG TID PO
     Route: 048
     Dates: end: 20060712
  2. MULTIPLE MEDICATIONS (NOS) [Concomitant]
  3. CITALOPRAM HYDROBROMIDE [Concomitant]

REACTIONS (8)
  - ARTERIOSCLEROSIS CORONARY ARTERY [None]
  - CONTUSION [None]
  - CORONARY ARTERY STENOSIS [None]
  - LACERATION [None]
  - MEDICATION RESIDUE [None]
  - PULMONARY HAEMORRHAGE [None]
  - PULMONARY OEDEMA [None]
  - TONGUE DISORDER [None]
